FAERS Safety Report 9382008 (Version 5)
Quarter: 2013Q4

REPORT INFORMATION
  Report Type: Report from Study
  Country: JP (occurrence: JP)
  Receive Date: 20130703
  Receipt Date: 20131118
  Transmission Date: 20140711
  Serious: Yes (Death, Other)
  Sender: FDA-Public Use
  Company Number: PHHY2013JP067409

PATIENT
  Age: 75 Year
  Sex: Male
  Weight: 57 kg

DRUGS (16)
  1. ICL670A [Suspect]
     Indication: MYELODYSPLASTIC SYNDROME
     Dosage: 1250 MG, DAILY
     Route: 048
     Dates: start: 20090625, end: 20091030
  2. ICL670A [Suspect]
     Dosage: 1250 MG, DAILY
     Route: 048
     Dates: start: 20100125, end: 20100305
  3. ICL670A [Suspect]
     Dosage: 625 MG, DAILY
     Route: 048
     Dates: start: 20100306, end: 20100408
  4. ICL670A [Suspect]
     Dosage: 625 MG, DAILY
     Route: 048
     Dates: start: 20100806, end: 20111026
  5. ICL670A [Suspect]
     Dosage: 1125 MG, DAILY
     Route: 048
     Dates: start: 20111027
  6. MAXIPIME [Suspect]
     Dosage: 1 G, DAILY
  7. PREDONINE [Concomitant]
     Indication: MYELODYSPLASTIC SYNDROME
     Dosage: 10 MG
     Route: 048
     Dates: start: 20090625
  8. PREDONINE [Concomitant]
     Dosage: 5 MG, UNK
     Route: 048
  9. PARIET [Concomitant]
     Indication: PROPHYLAXIS
     Dosage: 10 MG
     Route: 048
     Dates: start: 20090625
  10. BAKTAR [Concomitant]
     Indication: PROPHYLAXIS
     Dosage: 2 DF
     Route: 048
     Dates: start: 20090625
  11. JUZENTAIHOTO [Concomitant]
     Indication: MYELODYSPLASTIC SYNDROME
     Dosage: 7.5 MG
     Route: 048
     Dates: start: 20090625
  12. GLUCOBAY [Concomitant]
     Indication: TYPE 2 DIABETES MELLITUS
     Dosage: 150 MG
     Route: 048
     Dates: start: 20090904
  13. CICLOSPORIN [Concomitant]
     Dosage: UNK UKN, UNK
     Dates: start: 20120625
  14. RED CELLS MAP [Concomitant]
     Dosage: 2 UNITS EVERY WEEK
     Dates: start: 20090625, end: 20091225
  15. RED CELLS MAP [Concomitant]
     Dosage: 2 UNITS EVERY ONE WEEK TO 10 DAYS
     Dates: start: 20100125, end: 20120624
  16. RED CELLS MAP [Concomitant]
     Dosage: 2 UNITS EVERY ONE WEEK TO 10 YEARS
     Dates: start: 20120626, end: 20130624

REACTIONS (4)
  - Pneumonia [Fatal]
  - Myelodysplastic syndrome [Fatal]
  - Condition aggravated [Fatal]
  - Diabetes mellitus [Not Recovered/Not Resolved]
